FAERS Safety Report 7905722-3 (Version None)
Quarter: 2011Q4

REPORT INFORMATION
  Report Type: 
  Country: None (occurrence: None)
  Receive Date: 20111108
  Receipt Date: 20111101
  Transmission Date: 20120403
  Serious: Yes (Congenital Anomaly, Other)
  Sender: FDA-Public Use
  Company Number: AUR-APL-2010-02477

PATIENT
  Sex: Female

DRUGS (3)
  1. TRAMADOL HCL [Concomitant]
  2. MIRTAZAPINE [Suspect]
     Indication: PERSONALITY DISORDER
     Dosage: (45 MG), TRANSPLACENTAL
     Route: 064
  3. SEROQUEL [Suspect]
     Indication: PERSONALITY DISORDER
     Dosage: (250 MG), TRANSPLACENTAL
     Route: 064

REACTIONS (4)
  - TALIPES [None]
  - LIMB REDUCTION DEFECT [None]
  - FIBULA AGENESIS [None]
  - MATERNAL DRUGS AFFECTING FOETUS [None]
